FAERS Safety Report 24098404 (Version 2)
Quarter: 2024Q3

REPORT INFORMATION
  Report Type: Spontaneous
  Country: US (occurrence: US)
  Receive Date: 20240716
  Receipt Date: 20240909
  Transmission Date: 20241017
  Serious: Yes (Other)
  Sender: CB FLEET
  Company Number: US-PRESTIGE-202407-US-002184

PATIENT
  Sex: Female

DRUGS (1)
  1. EQUATE ARTIFICIAL TEARS (POLYVINYL ALCOHOL\POVIDONE) [Suspect]
     Active Substance: POLYVINYL ALCOHOL\POVIDONE
     Indication: Product used for unknown indication
     Dosage: USED IN ONE EYE
     Route: 047

REACTIONS (1)
  - Blindness transient [Recovered/Resolved]
